FAERS Safety Report 10409370 (Version 2)
Quarter: 2014Q3

REPORT INFORMATION
  Report Type: Report from Study
  Country: BR (occurrence: BR)
  Receive Date: 20140826
  Receipt Date: 20140826
  Transmission Date: 20150326
  Serious: Yes (Other)
  Sender: FDA-Public Use
  Company Number: PHHY2014BR097401

PATIENT
  Age: 58 Year
  Sex: Female
  Weight: 41 kg

DRUGS (4)
  1. VITAMIN D [Concomitant]
     Active Substance: CHOLECALCIFEROL
     Indication: OSTEOPOROSIS
     Dosage: 5 DRP, DAILY
  2. GILENYA [Suspect]
     Active Substance: FINGOLIMOD HYDROCHLORIDE
     Indication: MULTIPLE SCLEROSIS
     Dosage: 1 CAPSULE, DAILY
     Route: 048
     Dates: start: 20140627
  3. CYANOCOBALAMIN W/PYRIDOXINE HCL/DICLOFENAC SO [Suspect]
     Active Substance: CYANOCOBALAMIN\DICLOFENAC SODIUM\PYRIDOXINE HYDROCHLORIDE\THIAMINE MONONITRATE
     Indication: PAIN
  4. RISEDRONATE [Concomitant]
     Active Substance: RISEDRONATE SODIUM
     Indication: OSTEOPOROSIS
     Dosage: 1 TAB, DAILY

REACTIONS (10)
  - Abdominal pain upper [Recovered/Resolved]
  - Anxiety [Not Recovered/Not Resolved]
  - Fear [Unknown]
  - Depression [Not Recovered/Not Resolved]
  - Family stress [None]
  - Crying [Not Recovered/Not Resolved]
  - Hepatic pain [Not Recovered/Not Resolved]
  - Vomiting [Not Recovered/Not Resolved]
  - Blood urine present [Recovered/Resolved]
  - Inadequate analgesia [None]

NARRATIVE: CASE EVENT DATE: 201406
